FAERS Safety Report 21862635 (Version 1)
Quarter: 2023Q1

REPORT INFORMATION
  Report Type: Report from Study
  Country: US (occurrence: US)
  Receive Date: 20230114
  Receipt Date: 20230114
  Transmission Date: 20230418
  Serious: No
  Sender: FDA-Public Use
  Company Number: US-ABBVIE-4236382

PATIENT
  Sex: Male

DRUGS (6)
  1. SKYRIZI [Suspect]
     Active Substance: RISANKIZUMAB-RZAA
     Indication: Psoriasis
     Route: 058
     Dates: start: 201912
  2. SKYRIZI [Suspect]
     Active Substance: RISANKIZUMAB-RZAA
     Indication: Rheumatoid arthritis
  3. AMBIEN 10 MO TABLET [Concomitant]
     Indication: Product used for unknown indication
  4. PROBIOTIC-10 108-100 MG CAPSULE, [Concomitant]
     Indication: Product used for unknown indication
  5. PANTOPRAZOLE SODIUM 20 MO TABLET [Concomitant]
     Indication: Product used for unknown indication
  6. ADDERALL 10 MG TABLET [Concomitant]
     Indication: Product used for unknown indication

REACTIONS (1)
  - Pruritus [Not Recovered/Not Resolved]
